FAERS Safety Report 9726292 (Version 2)
Quarter: 2013Q4

REPORT INFORMATION
  Report Type: Spontaneous
  Country: IT (occurrence: IT)
  Receive Date: 20131203
  Receipt Date: 20131230
  Transmission Date: 20140711
  Serious: Yes (Other)
  Sender: FDA-Public Use
  Company Number: IT-ABBVIE-13P-083-1174874-00

PATIENT
  Age: 25 Year
  Sex: Male

DRUGS (3)
  1. MACLADIN [Suspect]
     Indication: BRONCHITIS
     Route: 048
     Dates: start: 20131015, end: 20131015
  2. ROCEFIN [Suspect]
     Indication: BRONCHITIS
     Route: 030
     Dates: start: 20131015, end: 20131015
  3. BENTELAN [Concomitant]
     Indication: BRONCHITIS

REACTIONS (1)
  - Angioedema [Unknown]
